FAERS Safety Report 7232831-7 (Version None)
Quarter: 2011Q1

REPORT INFORMATION
  Report Type: 
  Country: None (occurrence: None)
  Receive Date: 20110106
  Receipt Date: 20101221
  Transmission Date: 20110831
  Serious: Yes (Hospitalization, Other)
  Sender: FDA-Public Use
  Company Number: JHP201000391

PATIENT
  Age: 30 Year
  Sex: Male

DRUGS (1)
  1. KETALAR [Suspect]
     Indication: DRUG ABUSE

REACTIONS (8)
  - CYSTITIS [None]
  - HAEMATURIA [None]
  - RENAL FAILURE ACUTE [None]
  - HYDROURETER [None]
  - HYDRONEPHROSIS [None]
  - DRUG ABUSE [None]
  - CONTRACTED BLADDER [None]
  - LIVER FUNCTION TEST ABNORMAL [None]
